FAERS Safety Report 17725452 (Version 1)
Quarter: 2020Q2

REPORT INFORMATION
  Report Type: Spontaneous
  Country: CH (occurrence: CH)
  Receive Date: 20200429
  Receipt Date: 20200429
  Transmission Date: 20200714
  Serious: Yes (Life-Threatening, Hospitalization, Other)
  Sender: FDA-Public Use
  Company Number: CH-PFIZER INC-2020169681

PATIENT
  Age: 57 Year
  Sex: Male

DRUGS (12)
  1. CALCIMAGON D3 [Concomitant]
     Active Substance: CALCIUM\CHOLECALCIFEROL
     Dosage: UNK
     Dates: start: 20200401
  2. FLAGYL [Concomitant]
     Active Substance: METRONIDAZOLE\METRONIDAZOLE HYDROCHLORIDE
     Indication: BACTERIAL DIARRHOEA
     Dosage: 500 MG, 3X/DAY
     Route: 048
     Dates: start: 20200403, end: 20200405
  3. FOLIC ACID. [Concomitant]
     Active Substance: FOLIC ACID
     Dosage: UNK
     Dates: start: 20200401
  4. ZITHROMAX [Suspect]
     Active Substance: AZITHROMYCIN DIHYDRATE
     Indication: CORONAVIRUS INFECTION
     Dosage: 500 MG, 1X/DAY
     Route: 048
     Dates: start: 20200406, end: 20200407
  5. PLAQUENIL [Interacting]
     Active Substance: HYDROXYCHLOROQUINE SULFATE
     Indication: CORONAVIRUS INFECTION
     Dosage: 800 MG, SINGLE
     Route: 048
     Dates: start: 20200402, end: 20200402
  6. TAVANIC [Interacting]
     Active Substance: LEVOFLOXACIN
     Indication: BACTERIAL DIARRHOEA
     Dosage: 500 MG, 1X/DAY
     Route: 048
     Dates: start: 20200403, end: 20200407
  7. CO-AMOXICILLIN [Concomitant]
     Active Substance: AMOXICILLIN\CLAVULANATE POTASSIUM
     Dosage: 1.2 G, 3X/DAY
     Route: 042
     Dates: start: 20200401, end: 20200402
  8. CEFUROXIME. [Concomitant]
     Active Substance: CEFUROXIME
     Dosage: 1.5 G, 3X/DAY
     Route: 042
     Dates: start: 20200402, end: 20200403
  9. MYFORTIC [Concomitant]
     Active Substance: MYCOPHENOLATE SODIUM
     Dosage: 720 MG, 2X/DAY
     Route: 048
     Dates: start: 20200401, end: 20200401
  10. TAZOBAC [Concomitant]
     Active Substance: PIPERACILLIN SODIUM\TAZOBACTAM SODIUM
     Indication: OPPORTUNISTIC INFECTION
     Dosage: 2.25 G, 3X/DAY
     Route: 042
     Dates: start: 20200407
  11. ADVAGRAF [Concomitant]
     Active Substance: TACROLIMUS
     Dosage: 4 MG, 1X/DAY
     Route: 048
     Dates: start: 20200401
  12. LASIX [Concomitant]
     Active Substance: FUROSEMIDE
     Indication: RENAL IMPAIRMENT
     Dosage: 40 MG, 1X/DAY
     Route: 042
     Dates: start: 20200405

REACTIONS (5)
  - Electrocardiogram QT prolonged [Recovering/Resolving]
  - Drug interaction [Unknown]
  - Product use in unapproved indication [Unknown]
  - Opportunistic infection [Unknown]
  - Off label use [Unknown]

NARRATIVE: CASE EVENT DATE: 20200406
